FAERS Safety Report 7230706-0 (Version None)
Quarter: 2011Q1

REPORT INFORMATION
  Report Type: 
  Country: None (occurrence: None)
  Receive Date: 20110118
  Receipt Date: 20110106
  Transmission Date: 20110831
  Serious: Yes (Hospitalization)
  Sender: FDA-Public Use
  Company Number: US-GENZYME-CLOF-1001300

PATIENT
  Sex: Male

DRUGS (4)
  1. SODIUM BICARBONATE [Concomitant]
     Indication: PRODUCT USED FOR UNKNOWN INDICATION
     Route: 065
  2. KAYEXALATE [Concomitant]
     Indication: PRODUCT USED FOR UNKNOWN INDICATION
     Route: 065
  3. METOPROLOL [Concomitant]
     Indication: PRODUCT USED FOR UNKNOWN INDICATION
     Dosage: UNK
     Route: 065
  4. CLOFARABINE [Suspect]
     Indication: MYELODYSPLASTIC SYNDROME
     Dosage: 25 MG, QDX5
     Route: 048
     Dates: start: 20101025, end: 20101029

REACTIONS (6)
  - DEHYDRATION [None]
  - RENAL FAILURE [None]
  - HAEMATURIA [None]
  - NEUTROPENIA [None]
  - THROMBOCYTOPENIA [None]
  - ARRHYTHMIA [None]
